FAERS Safety Report 9837283 (Version 6)
Quarter: 2014Q4

REPORT INFORMATION
  Report Type: Spontaneous
  Country: US (occurrence: US)
  Receive Date: 20140123
  Receipt Date: 20141007
  Transmission Date: 20150529
  Serious: Yes (Other)
  Sender: FDA-Public Use
  Company Number: US-PFIZER INC-2014018667

PATIENT
  Age: 78 Year
  Sex: Female
  Weight: 66.67 kg

DRUGS (25)
  1. NAPROXEN SODIUM. [Concomitant]
     Active Substance: NAPROXEN SODIUM
     Dosage: 400 MG, DAILY
     Route: 048
  2. ZEGERID [Concomitant]
     Active Substance: OMEPRAZOLE\SODIUM BICARBONATE
     Dosage: UNK
     Route: 048
  3. ROXICODONE [Concomitant]
     Active Substance: OXYCODONE HYDROCHLORIDE
     Dosage: 5 MG BY MOUTH EVERY 4 HOURS AS NEEDED
     Route: 048
  4. ALLEGRA [Concomitant]
     Active Substance: FEXOFENADINE HYDROCHLORIDE
     Dosage: 180 MG, DAILY
     Route: 048
  5. SUTENT [Suspect]
     Active Substance: SUNITINIB MALATE
     Indication: METASTATIC RENAL CELL CARCINOMA
     Dosage: 25 MG, CYCLIC (25 MG ONCE DAILY, 4 WEEKS ON, 2 WEEKS OFF)
     Route: 048
     Dates: start: 201401, end: 20140807
  6. ULTRAM [Concomitant]
     Active Substance: TRAMADOL HYDROCHLORIDE
     Dosage: 50 MG, AS NEEDED (EVERY 6 HOURS AS NEEDED)
     Route: 048
  7. ZOFRAN [Concomitant]
     Active Substance: ONDANSETRON HYDROCHLORIDE
     Dosage: 8 MG, DAILY
     Route: 048
  8. FLONASE [Concomitant]
     Active Substance: FLUTICASONE PROPIONATE
     Dosage: 50 UG/ACTUATION, DAILY (APPLY 2 SPRAYS TO EACH NOSTRIL AS DIRECTED DAILY)
  9. RELAFEN [Concomitant]
     Active Substance: NABUMETONE
     Dosage: 750 MG, 2X/DAY
     Route: 048
  10. OMEGA 3/VITAMIN E [Concomitant]
     Dosage: 1000 MG, DAILY ( TAKE 1 CAP BY MOUTH DAILY)
     Route: 048
  11. NOLVADEX [Concomitant]
     Active Substance: TAMOXIFEN CITRATE
     Dosage: 20 MG, DAILY
     Route: 048
  12. OCUVITE [Concomitant]
     Active Substance: VITAMINS
     Dosage: UNK
     Route: 048
  13. COLACE [Concomitant]
     Active Substance: DOCUSATE SODIUM
     Dosage: 100 MG, 2X/DAY
     Route: 048
  14. ALBUTEROL (VENTOLIN HFA) [Concomitant]
     Dosage: 90 MCG/ACTUATION INHALER (INHALE 1-2 PUFFS BY MOUTH AS NEEDED)
  15. DILTIAZEM HCL [Concomitant]
     Active Substance: DILTIAZEM HYDROCHLORIDE
     Dosage: 300 MG, DAILY
     Route: 048
  16. ADVAIR DISKUS [Concomitant]
     Active Substance: FLUTICASONE PROPIONATE\SALMETEROL XINAFOATE
     Dosage: 250-50MCG, (INHALE 1 PUFF BY MOUTH EVERY 12 HOURS)
     Route: 048
  17. OCUVITE OMEGA 3 [Concomitant]
     Dosage: 1 DF, DAILY
     Route: 048
  18. VICODIN [Concomitant]
     Active Substance: ACETAMINOPHEN\HYDROCODONE BITARTRATE
     Dosage: HYDROCODONE BITARTRATE 5MG, PARACETAMOL 325MG (1TAB BY MOUTH EVERY 4 HOURS AS NEEDED)
     Route: 048
  19. PRAVACHOL [Concomitant]
     Active Substance: PRAVASTATIN SODIUM
     Dosage: 20 MG, DAILY
     Route: 048
  20. DYAZIDE [Concomitant]
     Active Substance: HYDROCHLOROTHIAZIDE\TRIAMTERENE
     Dosage: TRIAMTERENE 37.5MG-HYDROCHLOROTHIAZIDE 25MG (EVERY MORNING)
     Route: 048
  21. ALBUTEROL (PROAIR HFA) [Concomitant]
     Dosage: UNK
  22. LEKOVIT CA [Concomitant]
     Active Substance: CALCIUM CARBONATE\CHOLECALCIFEROL
     Dosage: 1.200 MG, DAILY
     Route: 048
  23. MYCOSTATIN [Concomitant]
     Active Substance: NYSTATIN
     Dosage: 500.000 IU, 4X/DAY
     Route: 048
  24. SPIRIVA [Concomitant]
     Active Substance: TIOTROPIUM BROMIDE MONOHYDRATE
     Dosage: 18 UG, DAILY
     Route: 048
  25. PEPCID [Concomitant]
     Active Substance: FAMOTIDINE
     Dosage: 40 MG, DAILY
     Route: 048

REACTIONS (24)
  - Decreased appetite [Not Recovered/Not Resolved]
  - Stomatitis [Unknown]
  - Peripheral swelling [Not Recovered/Not Resolved]
  - Back pain [Unknown]
  - Fatigue [Not Recovered/Not Resolved]
  - Abdominal pain [Unknown]
  - Chest discomfort [Unknown]
  - Pleural effusion [Unknown]
  - Weight decreased [Recovered/Resolved]
  - Dysuria [Unknown]
  - Dizziness [Unknown]
  - Anorectal discomfort [Recovered/Resolved]
  - Vulvovaginal mycotic infection [Unknown]
  - Contusion [Unknown]
  - Diarrhoea [Unknown]
  - Oral pain [Recovered/Resolved]
  - Myalgia [Unknown]
  - Pain [Unknown]
  - Hypoaesthesia [Unknown]
  - Decreased appetite [Recovered/Resolved]
  - Constipation [Unknown]
  - Arthralgia [Unknown]
  - Vulvovaginal discomfort [Unknown]
  - Haemorrhoids [Unknown]

NARRATIVE: CASE EVENT DATE: 20140120
